FAERS Safety Report 25538122 (Version 1)
Quarter: 2025Q3

REPORT INFORMATION
  Report Type: Spontaneous
  Country: EU (occurrence: EU)
  Receive Date: 20250710
  Receipt Date: 20250710
  Transmission Date: 20251021
  Serious: Yes (Hospitalization)
  Sender: TEVA
  Company Number: None

PATIENT
  Age: 70 Year
  Sex: Female
  Weight: 46 kg

DRUGS (1)
  1. OCTREOTIDE [Suspect]
     Active Substance: OCTREOTIDE
     Indication: Neuroendocrine tumour of the lung
     Route: 030
     Dates: start: 202305

REACTIONS (1)
  - Gouty arthritis [Recovered/Resolved]

NARRATIVE: CASE EVENT DATE: 20240501
